FAERS Safety Report 14627863 (Version 3)
Quarter: 2018Q1

REPORT INFORMATION
  Report Type: Spontaneous
  Country: IT (occurrence: IT)
  Receive Date: 20180307
  Receipt Date: 20180328
  Transmission Date: 20180509
  Serious: Yes (Hospitalization)
  Sender: FDA-Public Use
  Company Number: IT-CONCORDIA PHARMACEUTICALS INC.-E2B_00010369

PATIENT
  Age: 86 Year
  Sex: Female
  Weight: 68 kg

DRUGS (7)
  1. BISOPROLOL FUMARATE. [Suspect]
     Active Substance: BISOPROLOL FUMARATE
     Route: 048
  2. CARDIOASPIRIN [Concomitant]
     Active Substance: ASPIRIN
     Route: 048
  3. PERINDOPRIL [Concomitant]
     Active Substance: PERINDOPRIL
     Route: 048
  4. FUROSEMIDE. [Concomitant]
     Active Substance: FUROSEMIDE
     Route: 048
  5. AMLODINE /00972401/ [Concomitant]
     Route: 048
  6. LANOXIN [Suspect]
     Active Substance: DIGOXIN
     Route: 048
     Dates: start: 20170101, end: 20170715
  7. EUTIROX [Concomitant]
     Active Substance: LEVOTHYROXINE SODIUM
     Route: 048

REACTIONS (3)
  - Sinus bradycardia [Recovering/Resolving]
  - Drug interaction [Recovering/Resolving]
  - Asthenia [Recovering/Resolving]

NARRATIVE: CASE EVENT DATE: 20170715
